FAERS Safety Report 10823730 (Version 1)
Quarter: 2015Q1

REPORT INFORMATION
  Report Type: Spontaneous
  Country: US (occurrence: None)
  Receive Date: 20150218
  Receipt Date: 20150218
  Transmission Date: 20150721
  Serious: Yes (Death, Disabling, Other)
  Sender: FDA-Public Use
  Company Number: None

PATIENT
  Age: 73 Year
  Sex: Male
  Weight: 97.52 kg

DRUGS (2)
  1. ACYCLOVIR. [Suspect]
     Active Substance: ACYCLOVIR
     Indication: CHEMOTHERAPY
     Dates: start: 20140714, end: 20141016
  2. ACYCLOVIR. [Suspect]
     Active Substance: ACYCLOVIR
     Indication: NOSOCOMIAL INFECTION
     Dates: start: 20140714, end: 20141016

REACTIONS (1)
  - Death [None]

NARRATIVE: CASE EVENT DATE: 20140721
